FAERS Safety Report 4435416-0 (Version None)
Quarter: 2004Q3

REPORT INFORMATION
  Report Type: 
  Country: None (occurrence: None)
  Receive Date: 20040826
  Receipt Date: 20040813
  Transmission Date: 20050211
  Serious: Yes (Life-Threatening)
  Sender: FDA-Public Use
  Company Number: 04H-087-0270698-00

PATIENT
  Sex: 0

DRUGS (1)
  1. VERAPAMIL HYDROCHLORIDE [Suspect]
     Indication: ATRIAL FIBRILLATION
     Dosage: INTRAVENOUS
     Route: 042

REACTIONS (4)
  - POST PROCEDURAL COMPLICATION [None]
  - SHOCK [None]
  - TORSADE DE POINTES [None]
  - VENTRICULAR TACHYCARDIA [None]
